FAERS Safety Report 5275814-9 (Version None)
Quarter: 2007Q1

REPORT INFORMATION
  Report Type: 
  Country: None (occurrence: None)
  Receive Date: 20070326
  Receipt Date: 20070321
  Transmission Date: 20070707
  Serious: Yes (Other)
  Sender: FDA-Public Use
  Company Number: RU-GLAXOSMITHKLINE-B0463391A

PATIENT
  Age: 46 Year
  Sex: Female

DRUGS (3)
  1. FLIXOTIDE [Suspect]
     Indication: ASTHMA
     Route: 055
  2. SERETIDE [Suspect]
     Indication: ASTHMA
     Route: 055
  3. BECLOJET [Suspect]
     Indication: ASTHMA
     Route: 055

REACTIONS (6)
  - ANGIOEDEMA [None]
  - BACK PAIN [None]
  - DERMATITIS ALLERGIC [None]
  - DYSPNOEA [None]
  - NAUSEA [None]
  - TACHYCARDIA [None]
